FAERS Safety Report 9363666 (Version 1)
Quarter: 2013Q2

REPORT INFORMATION
  Report Type: Spontaneous
  Country: US (occurrence: None)
  Receive Date: 20130618
  Receipt Date: 20130618
  Transmission Date: 20140414
  Serious: Yes (Other)
  Sender: FDA-Public Use
  Company Number: FK201302026

PATIENT
  Age: 16 Year
  Sex: Female

DRUGS (26)
  1. ONDANSETRON [Suspect]
     Indication: PROPHYLAXIS OF NAUSEA AND VOMITING
     Dosage: 7 MG, ONCE DAILY, INTRAVENOUS
     Route: 042
     Dates: start: 20120921, end: 20120921
  2. APREPITANT [Suspect]
     Indication: PROPHYLAXIS OF NAUSEA AND VOMITING
     Dosage: 125 MG, ONCE DAILY, ORAL   3 DOSES
     Route: 048
  3. DEXAMETHASONE [Suspect]
     Indication: PROPHYLAXIS OF NAUSEA AND VOMITING
     Dosage: 10 ML, ONCE DAILY  4 DOSES
  4. DOXORUBICIN [Suspect]
     Indication: CHEMOTHERAPY
     Dosage: 52 MG, ONCE DAILY, 2 D
  5. IFOSFAMIDE [Suspect]
     Indication: CHEMOTHERAPY
     Dosage: 4200 MG, ONCE DAILY
  6. PLACEBO (PLACEBO) [Suspect]
     Indication: PROPHYLAXIS OF NAUSEA AND VOMITING
     Dosage: 125 MG, ONCE DAILY, ORAL
     Route: 048
  7. BOVINE COLOSTRUM [Concomitant]
  8. ANAESTHETIC (OTIDIN /00462701) [Concomitant]
  9. BUSCOPAN [Concomitant]
  10. CALCIUM CARBONATE (CALCIUM CARBONATE) [Concomitant]
  11. CIPROFLOXACIN (CIPROFLOXACIN) [Concomitant]
  12. CO-AMOXICLAV [Concomitant]
  13. CODEINE (CODEINE) [Concomitant]
  14. CODEINE PHOSPHATE (CODEINE PHOSPHATE) [Concomitant]
  15. CYCLIZINE (CYCLIZINE) [Concomitant]
  16. FENTANYL (FENTANYL) [Concomitant]
  17. HEPARIN (HEPARIN) [Concomitant]
  18. HYPROMELLOSE (HYPROMELLOSE) [Concomitant]
  19. MACROGOL (MACROGOL) [Concomitant]
  20. MESNA (MESNA) [Concomitant]
  21. NORETHINDRONE (NORETHISTERONE) [Concomitant]
  22. OXYCODONE (OXYCODONE) [Concomitant]
  23. PARACETAMOL (PARACETAMOL) [Concomitant]
  24. RED BLOOD CELLS (RED BLOOD CELLS) [Concomitant]
  25. UNKNOWN MEDICATION [Concomitant]
  26. TEICOPLANIN (TEICOPLANIN) [Concomitant]

REACTIONS (18)
  - Device related infection [None]
  - Off label use [None]
  - Febrile neutropenia [None]
  - Mucosal inflammation [None]
  - Periorbital cellulitis [None]
  - Vena cava thrombosis [None]
  - Medical device complication [None]
  - Diarrhoea [None]
  - Constipation [None]
  - Blood potassium decreased [None]
  - Blood calcium decreased [None]
  - Haemoglobin decreased [None]
  - Abdominal pain [None]
  - Thrombosis [None]
  - Device dislocation [None]
  - Vena cava thrombosis [None]
  - Jugular vein thrombosis [None]
  - Device malfunction [None]
